FAERS Safety Report 4640287-3 (Version None)
Quarter: 2005Q2

REPORT INFORMATION
  Report Type: 
  Country: None (occurrence: None)
  Receive Date: 20050419
  Receipt Date: 20050405
  Transmission Date: 20051028
  Serious: Yes (Other)
  Sender: FDA-Public Use
  Company Number: 430022K05USA

PATIENT
  Sex: Male

DRUGS (2)
  1. NOVANTRONE [Suspect]
     Indication: MULTIPLE SCLEROSIS
     Dosage: 1 IN 6 MONTHS
     Dates: start: 20030101
  2. REBIF [Concomitant]

REACTIONS (4)
  - ANOREXIA [None]
  - CARDIAC OUTPUT DECREASED [None]
  - REFUSAL OF TREATMENT BY PATIENT [None]
  - TREMOR [None]
